FAERS Safety Report 4479680-0 (Version None)
Quarter: 2004Q4

REPORT INFORMATION
  Report Type: 
  Country: None (occurrence: None)
  Receive Date: 20041020
  Receipt Date: 20040924
  Transmission Date: 20050328
  Serious: Yes (Hospitalization, Other)
  Sender: FDA-Public Use
  Company Number: GB-GLAXOSMITHKLINE-B0346529A

PATIENT
  Age: 29 Year
  Sex: Male

DRUGS (5)
  1. TRIZIVIR [Suspect]
     Indication: HIV INFECTION
     Dosage: 1TAB TWICE PER DAY
     Route: 048
     Dates: start: 20020101, end: 20040915
  2. ANTIHEMOPHILIC FACTOR (HUMAN) [Concomitant]
     Dosage: 3000IU AS REQUIRED
     Route: 042
     Dates: start: 19990101
  3. TENOFOVIR [Concomitant]
     Dates: start: 20040915
  4. LAMIVUDINE [Concomitant]
     Dates: start: 20040915
  5. EFAVIRENZ [Concomitant]
     Dates: start: 20040915

REACTIONS (6)
  - APLASIA PURE RED CELL [None]
  - BONE MARROW DISORDER [None]
  - DYSPNOEA [None]
  - MACROCYTOSIS [None]
  - MYELOID MATURATION ARREST [None]
  - PALPITATIONS [None]
